FAERS Safety Report 7541001-4 (Version None)
Quarter: 2011Q2

REPORT INFORMATION
  Report Type: 
  Country: None (occurrence: None)
  Receive Date: 20110610
  Receipt Date: 20110602
  Transmission Date: 20111010
  Serious: Yes (Hospitalization)
  Sender: FDA-Public Use
  Company Number: US-ABBOTT-11P-163-0730021-00

PATIENT
  Sex: Female

DRUGS (5)
  1. REMERON [Concomitant]
     Indication: DEPRESSION
  2. HUMIRA [Suspect]
  3. HUMIRA [Suspect]
     Indication: CROHN'S DISEASE
     Route: 058
     Dates: start: 20090528, end: 20090528
  4. MERCAPTOPURINE [Concomitant]
     Indication: CROHN'S DISEASE
     Dates: start: 20040101
  5. HUMIRA [Suspect]
     Route: 058

REACTIONS (1)
  - CONVULSION [None]
